FAERS Safety Report 20142571 (Version 1)
Quarter: 2021Q4

REPORT INFORMATION
  Report Type: Spontaneous
  Country: US (occurrence: None)
  Receive Date: 20211202
  Receipt Date: 20211202
  Transmission Date: 20220304
  Serious: No
  Sender: FDA-Public Use
  Company Number: US-ROCHE-2919534

PATIENT
  Age: 18 Year
  Sex: Female
  Weight: 52.664 kg

DRUGS (26)
  1. EVRYSDI [Suspect]
     Active Substance: RISDIPLAM
     Indication: Spinal muscular atrophy
     Dosage: VIA G-TUBE (STRENGTH 60 MG/80 ML BOTTLE)
     Route: 050
     Dates: start: 20210709
  2. EVRYSDI [Suspect]
     Active Substance: RISDIPLAM
  3. EVRYSDI [Suspect]
     Active Substance: RISDIPLAM
  4. EVRYSDI [Suspect]
     Active Substance: RISDIPLAM
  5. EVRYSDI [Suspect]
     Active Substance: RISDIPLAM
  6. VITAMINS [Concomitant]
     Active Substance: VITAMINS
     Dosage: VIA G-TUBE
     Route: 050
  7. VITAMIN D3 [Concomitant]
     Active Substance: CHOLECALCIFEROL
     Dosage: 1000 UNITS VIA G-TUBE
     Route: 050
  8. MELATONIN [Concomitant]
     Active Substance: MELATONIN
     Dosage: VIA G-TUBE ALTERNATE 6 MG BEDTIME
     Route: 050
  9. MELATONIN [Concomitant]
     Active Substance: MELATONIN
     Dosage: VIA G-TUBE ALTERNATE 5 MG BEDTIME
     Route: 050
  10. CETIRIZINE [Concomitant]
     Active Substance: CETIRIZINE HYDROCHLORIDE
     Indication: Hypersensitivity
     Dosage: VIA G-TUBE (10 MG/1 ML)
     Route: 050
  11. CETIRIZINE [Concomitant]
     Active Substance: CETIRIZINE HYDROCHLORIDE
     Dosage: 1 ADDITIONAL DOSE DAILY VIA G-TUBE PRN
     Route: 050
  12. FLONASE [Concomitant]
     Active Substance: FLUTICASONE PROPIONATE
     Dosage: 1 SPRAY EACH NOSTRIL
     Route: 045
  13. ACYCLOVIR [Concomitant]
     Active Substance: ACYCLOVIR
     Dosage: 10 ML (200 MG/5 ML) VIA G-TUBE
     Route: 050
  14. CUVPOSA [GLYCOPYRRONIUM] [Concomitant]
     Dosage: VIA G-TUBE UP TO 3 TIMES PER DAY AS NEEDED
     Route: 050
  15. ALBUTEROL SULFATE [Concomitant]
     Active Substance: ALBUTEROL SULFATE
     Indication: Nasal congestion
  16. ALBUTEROL SULFATE [Concomitant]
     Active Substance: ALBUTEROL SULFATE
     Dosage: EVERY 4 HOURS FOR INCREASED CONGESTION
  17. PARODONTAX [CHLORHEXIDINE] [Concomitant]
     Dosage: MOUTHWASH SPIT OUT ONCE DAILY
     Route: 048
  18. ACETAMINOPHEN [Concomitant]
     Active Substance: ACETAMINOPHEN
     Indication: Pyrexia
     Dosage: (160 MG/5 ML STRENGTH) VIA G-TUBE
     Route: 050
  19. ACETAMINOPHEN [Concomitant]
     Active Substance: ACETAMINOPHEN
     Indication: Pain
  20. IBUPROFEN [Concomitant]
     Active Substance: IBUPROFEN
     Indication: Pyrexia
     Dosage: (100 MG/5ML STRENGTH) VIA G-TUBE PRN EVERY 6 HOURS
     Route: 050
  21. IBUPROFEN [Concomitant]
     Active Substance: IBUPROFEN
     Indication: Pain
  22. DEPO-PROVERA [Concomitant]
     Active Substance: MEDROXYPROGESTERONE ACETATE
     Dosage: GIVEN VIA DELTOID
     Route: 030
  23. KETOCONAZOLE [Concomitant]
     Active Substance: KETOCONAZOLE
     Indication: Catheter site erythema
     Route: 061
  24. TRIAMCINOLONE [Concomitant]
     Active Substance: TRIAMCINOLONE
     Indication: Erythema
     Route: 061
  25. MIRALAX [Concomitant]
     Active Substance: POLYETHYLENE GLYCOL 3350
     Indication: Constipation
     Dosage: 4 OUNCES DAILY VIA G-TUBE
     Route: 050
  26. MIRALAX [Concomitant]
     Active Substance: POLYETHYLENE GLYCOL 3350
     Dosage: DECREASE BY 1 OUNCE EVERY DAY VIA G-TUBE AS NEEDED
     Route: 050

REACTIONS (2)
  - Product dose omission issue [Unknown]
  - Intermenstrual bleeding [Recovered/Resolved]

NARRATIVE: CASE EVENT DATE: 20210823
